FAERS Safety Report 21616995 (Version 1)
Quarter: 2022Q4

REPORT INFORMATION
  Report Type: Other
  Country: None (occurrence: TH)
  Receive Date: 20221118
  Receipt Date: 20221118
  Transmission Date: 20230112
  Serious: Yes (Life-Threatening, Hospitalization)
  Sender: FDA-Public Use
  Company Number: TH-Vitruvias Therapeutics-2135063

PATIENT
  Age: 32 Year
  Sex: Male
  Weight: 49 kg

DRUGS (1)
  1. LIDOCAINE [Suspect]
     Active Substance: LIDOCAINE
     Route: 058

REACTIONS (1)
  - Local anaesthetic systemic toxicity [Recovered/Resolved with Sequelae]
